FAERS Safety Report 4380698-7 (Version None)
Quarter: 2004Q2

REPORT INFORMATION
  Report Type: 
  Country: None (occurrence: None)
  Receive Date: 20040614
  Receipt Date: 20040603
  Transmission Date: 20050107
  Serious: Yes (Death, Other)
  Sender: FDA-Public Use
  Company Number: KII-2000-0001065

PATIENT
  Sex: Male

DRUGS (5)
  1. OXYCONTIN TABLETS (OXYCODONE HYDROCHLORIDE) CR TABLET [Suspect]
     Dosage: 1600 MG, Q12H
     Dates: start: 20000801, end: 20000801
  2. VALIUM [Suspect]
  3. DECADRON [Suspect]
  4. SENOKOT-S (SENNOSIDE A+B, DOCUSATE SODIUM) [Concomitant]
  5. MILK OF MAGNESIA (MAGNESIUM HYDROXIDE) [Concomitant]

REACTIONS (1)
  - MEDICATION ERROR [None]
